FAERS Safety Report 20843431 (Version 2)
Quarter: 2022Q2

REPORT INFORMATION
  Report Type: Spontaneous
  Country: US (occurrence: US)
  Receive Date: 20220518
  Receipt Date: 20220629
  Transmission Date: 20220721
  Serious: No
  Sender: FDA-Public Use
  Company Number: US-BRISTOL-MYERS SQUIBB COMPANY-2022-039546

PATIENT
  Age: 65 Year
  Sex: Female

DRUGS (1)
  1. ONUREG [Suspect]
     Active Substance: AZACITIDINE
     Indication: Product used for unknown indication
     Dosage: ON DAYS 1-14 OF EACH 28-DAY CHEMOTHERAPY?CYCLE/ONE TABLET BY MOUTH DAILY
     Route: 048

REACTIONS (4)
  - Constipation [Unknown]
  - Nausea [Unknown]
  - Illness [Unknown]
  - Platelet count decreased [Unknown]
